FAERS Safety Report 4278401-4 (Version None)
Quarter: 2004Q1

REPORT INFORMATION
  Report Type: 
  Country: None (occurrence: None)
  Receive Date: 20040123
  Receipt Date: 20040109
  Transmission Date: 20041129
  Serious: Yes (Hospitalization)
  Sender: FDA-Public Use
  Company Number: GB-BRISTOL-MYERS SQUIBB COMPANY-12485595

PATIENT
  Sex: Female

DRUGS (1)
  1. APROVEL TABS [Suspect]
     Dosage: BEGAN APROVEL 150MG DAILY ON 09-OCT-03,THEN INCREASED TO 225MG DAILY ON 08-DEC-03.
     Route: 048
     Dates: start: 20031009

REACTIONS (1)
  - HYPERSENSITIVITY [None]
